FAERS Safety Report 10680688 (Version 2)
Quarter: 2015Q4

REPORT INFORMATION
  Report Type: Spontaneous
  Country: US (occurrence: US)
  Receive Date: 20141229
  Receipt Date: 20151112
  Transmission Date: 20160304
  Serious: Yes (Other)
  Sender: FDA-Public Use
  Company Number: US-SA-2014SA140738

PATIENT
  Age: 76 Year
  Sex: Male
  Weight: 91 kg

DRUGS (12)
  1. TEMAZEPAM. [Concomitant]
     Active Substance: TEMAZEPAM
  2. METFORMIN [Concomitant]
     Active Substance: METFORMIN HYDROCHLORIDE
  3. HYDROCHLOROTHIAZIDE. [Concomitant]
     Active Substance: HYDROCHLOROTHIAZIDE
  4. VALIUM [Concomitant]
     Active Substance: DIAZEPAM
  5. PLAVIX [Suspect]
     Active Substance: CLOPIDOGREL BISULFATE
     Route: 065
  6. XTANDI [Suspect]
     Active Substance: ENZALUTAMIDE
     Indication: PROSTATE CANCER METASTATIC
     Route: 048
     Dates: start: 20130519
  7. CRESTOR [Concomitant]
     Active Substance: ROSUVASTATIN CALCIUM
  8. TYLENOL [Concomitant]
     Active Substance: ACETAMINOPHEN
  9. ASPIRIN. [Suspect]
     Active Substance: ASPIRIN
     Route: 065
  10. FIBERCON [Concomitant]
     Active Substance: CALCIUM POLYCARBOPHIL
  11. TOPROL XL [Concomitant]
     Active Substance: METOPROLOL SUCCINATE
  12. ALEVE [Concomitant]
     Active Substance: NAPROXEN SODIUM

REACTIONS (16)
  - Malaise [Recovered/Resolved]
  - Fatigue [Unknown]
  - Fall [Unknown]
  - Dry mouth [Recovered/Resolved]
  - Weight decreased [Recovered/Resolved]
  - Haemorrhage [Recovered/Resolved]
  - Animal scratch [Unknown]
  - Neoplasm malignant [Unknown]
  - Rhinitis [Not Recovered/Not Resolved]
  - Joint injury [Unknown]
  - Nausea [Unknown]
  - Urinary incontinence [Unknown]
  - Rhinorrhoea [Not Recovered/Not Resolved]
  - Salivary hypersecretion [Not Recovered/Not Resolved]
  - Excoriation [Unknown]
  - Hot flush [Recovered/Resolved]

NARRATIVE: CASE EVENT DATE: 201405
